FAERS Safety Report 5921541-1 (Version None)
Quarter: 2008Q3

REPORT INFORMATION
  Report Type: 
  Country: None (occurrence: None)
  Receive Date: 20080909
  Receipt Date: 20070928
  Transmission Date: 20090109
  Serious: Yes (Hospitalization)
  Sender: FDA-Public Use
  Company Number: 163-20785-07091593

PATIENT
  Age: 50 Year
  Sex: Male
  Weight: 114.8 kg

DRUGS (21)
  1. THALOMID [Suspect]
     Indication: MULTIPLE MYELOMA
     Dosage: 200MG - 50MG, ORAL
     Route: 048
     Dates: start: 20050802, end: 20070808
  2. VELCADE [Suspect]
     Indication: MULTIPLE MYELOMA
     Dosage: 1 MG/M2 - 0.8 MG/M2 ; DAYS 1, 4, 8, 11
     Dates: start: 20050730, end: 20070524
  3. DEXAMETHASONE TAB [Suspect]
     Indication: MULTIPLE MYELOMA
     Dosage: 40MG - 20MG
     Dates: start: 20050802, end: 20060613
  4. CISPLATIN [Suspect]
     Indication: MULTIPLE MYELOMA
     Dosage: 10 MG/M2 - 7.5 MG/M2
     Dates: start: 20050802, end: 20060520
  5. ADRIAMYCIN PFS [Suspect]
     Indication: MULTIPLE MYELOMA
     Dosage: 10 MG/M2 - 7.5 MG/M2
     Dates: start: 20050802, end: 20060520
  6. CYCLOPHOSPHAMIDE [Suspect]
     Indication: MULTIPLE MYELOMA
     Dosage: 400MG/M2 - 300MG/M2
     Dates: start: 20050802, end: 20060520
  7. ETOPOSIDE [Suspect]
     Indication: MULTIPLE MYELOMA
     Dosage: 40 MG/M2 - 30 MG/M2
     Dates: start: 20050802, end: 20060520
  8. MELPHALAN (MELPHALAN) [Suspect]
     Indication: MULTIPLE MYELOMA
     Dosage: 200 MG/M2 ; 200 MG/M2
     Dates: start: 20051009, end: 20051009
  9. LEXAPRO [Concomitant]
  10. ACYCLOVIR (ACICLOVIR) (400 MILLIGRAM, TABLETS) [Concomitant]
  11. LORAZEPAM (LORAZEPAM) (1 MILLIGRAM, TABLETS) [Concomitant]
  12. AMBIEN (ZOLPIDEM TARTRATE) (10 MILLIGRAM, TABLETS) [Concomitant]
  13. XANAX [Concomitant]
  14. ZYRTEC (CETIRIZINE HYDROCHLORIDE) (10 MILLIGRAM, TABLETS) [Concomitant]
  15. MULTIVITAMINS (MULTIVITAMINS) (TABLETS) [Concomitant]
  16. B COMPLEX (BECOSYM FORTE) (CAPSULES) [Concomitant]
  17. ASCORBIC ACID [Concomitant]
  18. PROCRIT (ERYTHROPOIETIN) (SOLUTION) [Concomitant]
  19. AREDIA [Concomitant]
  20. TESTOSTERONE (TESTOSTERONE) (POULTICE OR PATCH) [Concomitant]
  21. AVELOX (MOXIFLOXACIN HYDROCHLORIDE) (400 MILLIGRAM, TABLETS) [Concomitant]

REACTIONS (1)
  - APPENDICITIS [None]
